FAERS Safety Report 9543366 (Version 1)
Quarter: 2013Q3

REPORT INFORMATION
  Report Type: Spontaneous
  Country: BR (occurrence: BR)
  Receive Date: 20130923
  Receipt Date: 20130923
  Transmission Date: 20140515
  Serious: Yes (Other)
  Sender: FDA-Public Use
  Company Number: BR-AMGEN-BRASP2013066369

PATIENT
  Age: 71 Year
  Sex: Female
  Weight: 55 kg

DRUGS (3)
  1. PROLIA [Suspect]
     Indication: OSTEOPOROSIS
     Dosage: 60 MG/0.1ML, UNK
     Route: 042
     Dates: start: 201212
  2. CALCIUM [Concomitant]
  3. VITAMIN D                          /00107901/ [Concomitant]

REACTIONS (1)
  - Femur fracture [Unknown]
